FAERS Safety Report 4360997-5 (Version None)
Quarter: 2004Q2

REPORT INFORMATION
  Report Type: 
  Country: None (occurrence: None)
  Receive Date: 20040519
  Receipt Date: 20040519
  Transmission Date: 20050107
  Serious: Yes (Other)
  Sender: FDA-Public Use
  Company Number: None

PATIENT
  Age: 38 Year
  Sex: Female
  Weight: 66.2252 kg

DRUGS (5)
  1. FERRLECIT [Suspect]
     Indication: IRON DEFICIENCY ANAEMIA
     Dosage: (MONDAY AND THURSDAY) 125 MG IVPB
     Dates: start: 20040330
  2. FERRLECIT [Suspect]
     Indication: IRON DEFICIENCY ANAEMIA
     Dosage: (MONDAY AND THURSDAY) 125 MG IVPB
     Dates: start: 20040408
  3. FERRLECIT [Suspect]
     Indication: IRON DEFICIENCY ANAEMIA
     Dosage: (MONDAY AND THURSDAY) 125 MG IVPB
     Dates: start: 20040412
  4. FERRLECIT [Suspect]
     Indication: IRON DEFICIENCY ANAEMIA
     Dosage: (MONDAY AND THURSDAY) 125 MG IVPB
     Dates: start: 20040415
  5. FERRLECIT [Suspect]
     Indication: IRON DEFICIENCY ANAEMIA
     Dosage: (MONDAY AND THURSDAY) 125 MG IVPB
     Dates: start: 20040419

REACTIONS (4)
  - ASTHENIA [None]
  - HYPOAESTHESIA [None]
  - PARAESTHESIA [None]
  - THROAT IRRITATION [None]
